FAERS Safety Report 10685811 (Version 3)
Quarter: 2015Q2

REPORT INFORMATION
  Report Type: Report from Study
  Country: JP (occurrence: JP)
  Receive Date: 20141231
  Receipt Date: 20150401
  Transmission Date: 20150821
  Serious: Yes (Other)
  Sender: FDA-Public Use
  Company Number: JP-009507513-1405JPN007952

PATIENT
  Sex: Male
  Weight: 2.7 kg

DRUGS (2)
  1. DIAZOXIDE [Suspect]
     Active Substance: DIAZOXIDE
     Indication: HYPOGLYCAEMIA
     Dosage: 5 MG, TID
     Route: 048
     Dates: start: 20140329, end: 20140331
  2. DEXTROSE. [Concomitant]
     Active Substance: DEXTROSE
     Indication: HYPOGLYCAEMIA
     Dosage: 21 G, DOSAGE TEXT: DIVIDED DOSE FREQUENCY UNKNOWN (INCREASED OR DECREASED ACCORDING TO THE BLOOD SUG
     Route: 042
     Dates: start: 20140326, end: 20140411

REACTIONS (2)
  - Blood pressure decreased [Recovered/Resolved with Sequelae]
  - Urine output decreased [Recovered/Resolved with Sequelae]

NARRATIVE: CASE EVENT DATE: 20140330
